FAERS Safety Report 4758936-8 (Version None)
Quarter: 2005Q3

REPORT INFORMATION
  Report Type: 
  Country: None (occurrence: None)
  Receive Date: 20050831
  Receipt Date: 20050816
  Transmission Date: 20060218
  Serious: Yes (Hospitalization)
  Sender: FDA-Public Use
  Company Number: 05-08-1468

PATIENT
  Age: 18 Year
  Sex: Female

DRUGS (3)
  1. ALBUTEROL SULFATE [Suspect]
     Indication: ASTHMA
     Dosage: 4 X 5 MG INHALATION
     Route: 055
  2. ALBUTEROL SULFATE [Suspect]
     Indication: ASTHMA
     Dosage: 15 ?G /MIN INTRAVENOUS
     Route: 042
  3. CORTICOSTEROIDS [Concomitant]

REACTIONS (12)
  - BLOOD LACTATE DEHYDROGENASE INCREASED [None]
  - DYSPNOEA [None]
  - FATIGUE [None]
  - HEART RATE DECREASED [None]
  - HYPERGLYCAEMIA [None]
  - HYPOKALAEMIA [None]
  - LACTIC ACIDOSIS [None]
  - METABOLIC ACIDOSIS [None]
  - RESPIRATORY ACIDOSIS [None]
  - SOMNOLENCE [None]
  - TACHYPNOEA [None]
  - WHEEZING [None]
